FAERS Safety Report 10838827 (Version 1)
Quarter: 2015Q1

REPORT INFORMATION
  Report Type: Report from Study
  Country: US (occurrence: US)
  Receive Date: 20150219
  Receipt Date: 20150219
  Transmission Date: 20150721
  Serious: No
  Sender: FDA-Public Use
  Company Number: US-ABBVIE-14P-163-1228759-00

PATIENT
  Age: 64 Year
  Sex: Female

DRUGS (18)
  1. NORVASC [Concomitant]
     Active Substance: AMLODIPINE BESYLATE
     Indication: PRODUCT USED FOR UNKNOWN INDICATION
  2. UNKNOWN INHALERS AND PUFFERS FOR NEBULIZER [Concomitant]
     Indication: PRODUCT USED FOR UNKNOWN INDICATION
  3. CALCITRIOL. [Concomitant]
     Active Substance: CALCITRIOL
     Indication: PRODUCT USED FOR UNKNOWN INDICATION
  4. HUMIRA [Suspect]
     Active Substance: ADALIMUMAB
  5. SIMVASTATIN. [Concomitant]
     Active Substance: SIMVASTATIN
     Indication: PRODUCT USED FOR UNKNOWN INDICATION
  6. LEXAPRO [Concomitant]
     Active Substance: ESCITALOPRAM OXALATE
     Indication: PRODUCT USED FOR UNKNOWN INDICATION
  7. VITAMIN A [Concomitant]
     Active Substance: VITAMIN A
     Indication: PRODUCT USED FOR UNKNOWN INDICATION
     Dosage: OVER THE COUNTER
  8. HUMIRA [Suspect]
     Active Substance: ADALIMUMAB
     Dates: start: 20140318, end: 20140318
  9. SODIUM BICARBONATE. [Concomitant]
     Active Substance: SODIUM BICARBONATE
     Indication: PRODUCT USED FOR UNKNOWN INDICATION
  10. UNKNOWN BLOOD PRESSURE PILL [Concomitant]
     Indication: BLOOD PRESSURE
  11. HUMIRA [Suspect]
     Active Substance: ADALIMUMAB
     Indication: CROHN^S DISEASE
     Dates: start: 20140317, end: 20140317
  12. VITAMIN D3 [Concomitant]
     Active Substance: CHOLECALCIFEROL
     Indication: PRODUCT USED FOR UNKNOWN INDICATION
  13. VALIUM [Concomitant]
     Active Substance: DIAZEPAM
     Indication: PRODUCT USED FOR UNKNOWN INDICATION
  14. UNKNOWN EARDROPS [Concomitant]
     Indication: PRODUCT USED FOR UNKNOWN INDICATION
  15. NEXIUM [Concomitant]
     Active Substance: ESOMEPRAZOLE MAGNESIUM
     Indication: PRODUCT USED FOR UNKNOWN INDICATION
  16. HUMIRA [Suspect]
     Active Substance: ADALIMUMAB
     Dates: start: 20140408, end: 20140408
  17. BUDESONIDE. [Concomitant]
     Active Substance: BUDESONIDE
     Indication: GASTROINTESTINAL DISORDER
  18. BUDESONIDE. [Concomitant]
     Active Substance: BUDESONIDE
     Indication: BLADDER DISORDER

REACTIONS (3)
  - Inappropriate schedule of drug administration [Recovered/Resolved]
  - Wrong technique in drug usage process [Unknown]
  - Blood pressure increased [Recovering/Resolving]

NARRATIVE: CASE EVENT DATE: 20140331
